FAERS Safety Report 7263533-9 (Version None)
Quarter: 2011Q1

REPORT INFORMATION
  Report Type: 
  Country: None (occurrence: None)
  Receive Date: 20110130
  Receipt Date: 20101203
  Transmission Date: 20110831
  Serious: Yes (Hospitalization, Other)
  Sender: FDA-Public Use
  Company Number: US-ABBOTT-10P-163-0689577-00

PATIENT
  Sex: Female
  Weight: 74.91 kg

DRUGS (9)
  1. M.V.I. [Concomitant]
     Indication: PRODUCT USED FOR UNKNOWN INDICATION
  2. HUMIRA [Suspect]
     Indication: COLITIS ULCERATIVE
     Dates: start: 20080501
  3. VIT D [Concomitant]
     Indication: PRODUCT USED FOR UNKNOWN INDICATION
  4. VIETTA [Concomitant]
     Indication: BLOOD GLUCOSE ABNORMAL
     Route: 050
  5. PROVENTIL [Concomitant]
     Indication: ASTHMA
  6. ACIPHEX [Concomitant]
     Indication: PRODUCT USED FOR UNKNOWN INDICATION
  7. ALBUTEROL [Concomitant]
     Indication: ASTHMA
  8. SYNTHROID [Concomitant]
     Indication: PRODUCT USED FOR UNKNOWN INDICATION
  9. VIT D+CALC [Concomitant]
     Indication: PRODUCT USED FOR UNKNOWN INDICATION

REACTIONS (6)
  - BONE DENSITY ABNORMAL [None]
  - GASTRIC INFECTION [None]
  - HAND FRACTURE [None]
  - COLITIS ULCERATIVE [None]
  - INJECTION SITE PAIN [None]
  - FALL [None]
